FAERS Safety Report 5737697-X (Version None)
Quarter: 2008Q2

REPORT INFORMATION
  Report Type: 
  Country: None (occurrence: None)
  Receive Date: 20080512
  Receipt Date: 20080512
  Transmission Date: 20081010
  Serious: Yes (Other)
  Sender: FDA-Public Use
  Company Number: None

PATIENT
  Sex: Male
  Weight: 64.8644 kg

DRUGS (1)
  1. DIGITEK  0.25MG  MYLAN PHARMACEUTICALS [Suspect]
     Indication: CARDIAC FAILURE
     Dosage: ONE TABLET DAILY OTHER
     Route: 050
     Dates: start: 20080411, end: 20080509

REACTIONS (5)
  - ANOREXIA [None]
  - DIZZINESS [None]
  - DYSPNOEA [None]
  - NAUSEA [None]
  - VOMITING [None]
